FAERS Safety Report 7332056-0 (Version None)
Quarter: 2011Q1

REPORT INFORMATION
  Report Type: 
  Country: None (occurrence: None)
  Receive Date: 20110304
  Receipt Date: 20110224
  Transmission Date: 20110831
  Serious: Yes (Other)
  Sender: FDA-Public Use
  Company Number: US-BIOGENIDEC-2011BI007100

PATIENT
  Sex: Female

DRUGS (4)
  1. BETASERON [Concomitant]
     Indication: MULTIPLE SCLEROSIS
  2. REBIF [Concomitant]
     Indication: MULTIPLE SCLEROSIS
  3. COPAXONE [Concomitant]
     Indication: MULTIPLE SCLEROSIS
  4. AVONEX [Suspect]
     Indication: MULTIPLE SCLEROSIS
     Route: 030

REACTIONS (2)
  - ADVERSE REACTION [None]
  - CARDIAC FAILURE CONGESTIVE [None]
